FAERS Safety Report 5236704-0 (Version None)
Quarter: 2007Q1

REPORT INFORMATION
  Report Type: 
  Country: None (occurrence: None)
  Receive Date: 20070213
  Receipt Date: 20070202
  Transmission Date: 20070707
  Serious: Yes (Other)
  Sender: FDA-Public Use
  Company Number: GB-JNJFOC-20070201406

PATIENT
  Sex: Female

DRUGS (3)
  1. REMICADE [Suspect]
     Indication: RHEUMATOID ARTHRITIS
     Route: 042
  2. HORMONE REPLACEMENT THERAPY [Concomitant]
     Route: 065
  3. STEROIDS [Concomitant]
     Route: 065

REACTIONS (1)
  - HERPES ZOSTER [None]
